FAERS Safety Report 14074438 (Version 1)
Quarter: 2017Q4

REPORT INFORMATION
  Report Type: Spontaneous
  Country: CN (occurrence: CN)
  Receive Date: 20171011
  Receipt Date: 20171011
  Transmission Date: 20180321
  Serious: Yes (Hospitalization)
  Sender: FDA-Public Use
  Company Number: CN-PFIZER INC-2017436882

PATIENT
  Age: 25 Year
  Sex: Female
  Weight: 40 kg

DRUGS (4)
  1. METHYLPREDNISOLONE SODIUM SUCCINATE. [Suspect]
     Active Substance: METHYLPREDNISOLONE SODIUM SUCCINATE
     Indication: MENINGITIS TUBERCULOUS
     Dosage: 80 MG, 1X/DAY
     Route: 041
     Dates: start: 20170606, end: 20170610
  2. SODIUM CHLORIDE. [Concomitant]
     Active Substance: SODIUM CHLORIDE
     Dosage: 100 ML, 1X/DAY
     Route: 041
     Dates: start: 20170606, end: 20170610
  3. DEXAMETHASONE SODIUM PHOSPHATE. [Suspect]
     Active Substance: DEXAMETHASONE SODIUM PHOSPHATE
     Indication: MENINGITIS TUBERCULOUS
     Dosage: 10 MG, 1X/DAY
     Route: 041
     Dates: start: 20170606, end: 20170610
  4. SODIUM CHLORIDE. [Concomitant]
     Active Substance: SODIUM CHLORIDE
     Indication: VEHICLE SOLUTION USE
     Dosage: 500 ML, 1X/DAY
     Route: 041
     Dates: start: 20170606, end: 20170610

REACTIONS (3)
  - Anaemia [Unknown]
  - Gastrointestinal haemorrhage [Recovering/Resolving]
  - Diarrhoea [Unknown]

NARRATIVE: CASE EVENT DATE: 20170608
